FAERS Safety Report 4658363-8 (Version None)
Quarter: 2005Q2

REPORT INFORMATION
  Report Type: 
  Country: None (occurrence: None)
  Receive Date: 20050509
  Receipt Date: 20050425
  Transmission Date: 20051028
  Serious: Yes (Hospitalization)
  Sender: FDA-Public Use
  Company Number: HQWYE903727JAN05

PATIENT
  Age: 58 Year
  Sex: Female
  Weight: 95.2 kg

DRUGS (22)
  1. RAPAMUNE [Suspect]
     Indication: PROPHYLAXIS AGAINST TRANSPLANT REJECTION
     Dosage: 25 MG LOADING DOSE, ORAL; 5 MG 1X PER 1 DAY, ORAL
     Route: 048
     Dates: start: 20050121, end: 20050101
  2. RAPAMUNE [Suspect]
     Indication: PROPHYLAXIS AGAINST TRANSPLANT REJECTION
     Dosage: 25 MG LOADING DOSE, ORAL; 5 MG 1X PER 1 DAY, ORAL
     Route: 048
     Dates: start: 20050124, end: 20050101
  3. RAPAMUNE [Suspect]
     Indication: PROPHYLAXIS AGAINST TRANSPLANT REJECTION
     Dosage: 25 MG LOADING DOSE, ORAL; 5 MG 1X PER 1 DAY, ORAL
     Route: 048
     Dates: start: 20050122, end: 20050123
  4. RAPAMUNE [Suspect]
     Indication: PROPHYLAXIS AGAINST TRANSPLANT REJECTION
     Dosage: 25 MG LOADING DOSE, ORAL; 5 MG 1X PER 1 DAY, ORAL
     Route: 048
     Dates: start: 20050101
  5. HEPARIN [Suspect]
     Indication: THROMBOSIS PROPHYLAXIS
     Dosage: 5000 IU 3X PER 1 DAY, SUBCUTANEOUS
     Route: 058
     Dates: start: 20050120, end: 20050121
  6. RAPAMUNE [Suspect]
  7. RENAGEL (SEVELAMER) [Concomitant]
  8. ZOCOR [Concomitant]
  9. ZOLOFT [Concomitant]
  10. NEPRHO-VITE RX (ASCORBIC ACID/FOLIC ACID/VITAMIN B NOS) [Concomitant]
  11. ACTOS [Concomitant]
  12. CALCIUM CARBONATE (CALCIUM CARBONATE) [Concomitant]
  13. ASPIRIN [Concomitant]
  14. BENADRYL [Concomitant]
  15. LANTUS [Concomitant]
  16. TRAVATAN [Concomitant]
  17. ULTRACET [Concomitant]
  18. NEURONTIN [Concomitant]
  19. SYSTANE (POLYETHYLENE GLYCOL/PROPYLENE GLYCOL) [Concomitant]
  20. CELLCEPT [Concomitant]
  21. CORTICOSTEROID NOS (CORTICOSTEROID NOS) [Concomitant]
  22. LASIX [Concomitant]

REACTIONS (18)
  - ALANINE AMINOTRANSFERASE INCREASED [None]
  - ANAEMIA [None]
  - ASPARTATE AMINOTRANSFERASE INCREASED [None]
  - ATRIAL FIBRILLATION [None]
  - BLOOD CREATININE INCREASED [None]
  - COMPLICATIONS OF TRANSPLANT SURGERY [None]
  - DIALYSIS [None]
  - FLUID OVERLOAD [None]
  - HAEMATEMESIS [None]
  - HYPOTENSION [None]
  - NAUSEA [None]
  - POST PROCEDURAL HAEMATOMA [None]
  - POST PROCEDURAL HAEMORRHAGE [None]
  - TACHYCARDIA [None]
  - THROMBOCYTOPENIA [None]
  - ULTRASOUND DOPPLER ABNORMAL [None]
  - URINE OUTPUT INCREASED [None]
  - VOMITING [None]
